FAERS Safety Report 9218983 (Version 2)
Quarter: 2013Q3

REPORT INFORMATION
  Report Type: Spontaneous
  Country: FR (occurrence: FR)
  Receive Date: 20130409
  Receipt Date: 20130726
  Transmission Date: 20140515
  Serious: Yes (Hospitalization)
  Sender: FDA-Public Use
  Company Number: FR-PFIZER INC-2013110259

PATIENT
  Age: 73 Year
  Sex: Male

DRUGS (2)
  1. CORDARONE [Suspect]
     Dosage: 1 DF, DAILY 5 DAYS BY WEEK
     Route: 048
     Dates: start: 201102, end: 20130316
  2. PREVISCAN [Interacting]
     Dosage: 0.5 TABLET EVERY TWO DAYS AND 0.75 TABLET THE OTHER DAYS
     Route: 048
     Dates: start: 201102, end: 20130316

REACTIONS (3)
  - Drug interaction [Not Recovered/Not Resolved]
  - Spinal epidural haematoma [Recovered/Resolved with Sequelae]
  - Paraplegia [Not Recovered/Not Resolved]
